FAERS Safety Report 4450012-7 (Version None)
Quarter: 2004Q3

REPORT INFORMATION
  Report Type: 
  Country: None (occurrence: None)
  Receive Date: 20040915
  Receipt Date: 20040909
  Transmission Date: 20050211
  Serious: Yes (Life-Threatening, Hospitalization)
  Sender: FDA-Public Use
  Company Number: PHFR2004GB03433

PATIENT
  Age: 82 Year
  Sex: Male

DRUGS (12)
  1. DICLOFENAC [Suspect]
     Dosage: 75 MG/DAY
     Route: 048
     Dates: start: 19940101, end: 20040818
  2. WARFARIN SODIUM [Suspect]
     Indication: DEEP VEIN THROMBOSIS
     Dosage: 5 MG/DAY
     Route: 048
     Dates: start: 20020401, end: 20040818
  3. GLIPIZIDE [Concomitant]
     Dosage: 10 MG MANE
     Route: 048
  4. FENTANYL [Concomitant]
     Dosage: 75 UG, Q72H
     Route: 062
  5. BICALUTAMIDE [Concomitant]
     Dosage: 50 MG, QD
     Route: 048
  6. PARACETAMOL [Concomitant]
     Dosage: 1 G, QID
     Route: 048
  7. CARBAMAZEPINE [Concomitant]
     Dosage: 100 MG, TID
     Route: 048
  8. AMITRIPTYLINE HCL [Concomitant]
     Dosage: 100 MG NOCTE
     Route: 048
  9. DIAZEPAM [Concomitant]
     Dosage: 2 MG NOCTE
     Route: 048
  10. QUININE SULPHATE [Concomitant]
     Dosage: 300 MG NOCTE
     Route: 048
  11. FRUSEMIDE [Concomitant]
     Dosage: 40 MG MANE
     Route: 048
  12. CIMETIDINE [Concomitant]
     Dosage: 400 MG, BID
     Route: 048

REACTIONS (5)
  - DRUG INTERACTION [None]
  - GASTROINTESTINAL HAEMORRHAGE [None]
  - HAEMATEMESIS [None]
  - INTERNATIONAL NORMALISED RATIO INCREASED [None]
  - MALLORY-WEISS SYNDROME [None]
